FAERS Safety Report 19125267 (Version 1)
Quarter: 2021Q2

REPORT INFORMATION
  Report Type: Spontaneous
  Country: US (occurrence: US)
  Receive Date: 20210412
  Receipt Date: 20210412
  Transmission Date: 20210717
  Serious: Yes (Death)
  Sender: FDA-Public Use
  Company Number: US-MORPHOSYS US-2020-MOR001021-US

PATIENT

DRUGS (2)
  1. MONJUVI [Suspect]
     Active Substance: TAFASITAMAB-CXIX
     Indication: DIFFUSE LARGE B-CELL LYMPHOMA RECURRENT
     Dosage: 200 MILLIGRAM
     Route: 042
  2. LENALIDOMIDE [Concomitant]
     Active Substance: LENALIDOMIDE
     Indication: DIFFUSE LARGE B-CELL LYMPHOMA RECURRENT

REACTIONS (3)
  - Death [Fatal]
  - Disease progression [Unknown]
  - Drug ineffective [Unknown]
